FAERS Safety Report 6543696-0 (Version None)
Quarter: 2010Q1

REPORT INFORMATION
  Report Type: 
  Country: None (occurrence: None)
  Receive Date: 20100119
  Receipt Date: 20100119
  Transmission Date: 20100710
  Serious: Yes (Other)
  Sender: FDA-Public Use
  Company Number: None

PATIENT
  Age: 41 Year
  Sex: Male
  Weight: 98.4306 kg

DRUGS (5)
  1. MOTRIN IB [Suspect]
     Indication: BACK PAIN
     Dosage: 200 MG. 6 OR 7 TIMES PER DAY DAILY PO MY BEST ESTIMATE
     Route: 048
     Dates: start: 20091201, end: 20100114
  2. MOTRIN IB [Suspect]
     Indication: CHEST PAIN
     Dosage: 200 MG. 6 OR 7 TIMES PER DAY DAILY PO MY BEST ESTIMATE
     Route: 048
     Dates: start: 20091201, end: 20100114
  3. MOTRIN IB [Suspect]
     Indication: UNEVALUABLE EVENT
     Dosage: 200 MG. 6 OR 7 TIMES PER DAY DAILY PO MY BEST ESTIMATE
     Route: 048
     Dates: start: 20091201, end: 20100114
  4. ROLAIDS EXTRA STRENGTH 675 MG. MCNEIL CONSUMER HEALTHCARE [Suspect]
     Indication: DYSPEPSIA
     Dosage: 4-6 TABLETS DAILY 3 TIMES PER WEEK PO
     Route: 048
     Dates: start: 20091101, end: 20100114
  5. ROLAIDS EXTRA STRENGTH 675 MG. MCNEIL CONSUMER HEALTHCARE [Suspect]
     Indication: GASTROOESOPHAGEAL REFLUX DISEASE
     Dosage: 4-6 TABLETS DAILY 3 TIMES PER WEEK PO
     Route: 048
     Dates: start: 20091101, end: 20100114

REACTIONS (4)
  - ANGER [None]
  - FRUSTRATION [None]
  - PRODUCT QUALITY ISSUE [None]
  - TINNITUS [None]
